FAERS Safety Report 6829205-7 (Version None)
Quarter: 2010Q3

REPORT INFORMATION
  Report Type: 
  Country: None (occurrence: None)
  Receive Date: 20100709
  Receipt Date: 20070419
  Transmission Date: 20110219
  Serious: Yes (Other)
  Sender: FDA-Public Use
  Company Number: US-PFIZER INC-2007018071

PATIENT
  Sex: Female
  Weight: 57.6 kg

DRUGS (12)
  1. CHANTIX [Suspect]
     Indication: SMOKING CESSATION THERAPY
     Dates: start: 20070123, end: 20070127
  2. XANAX [Interacting]
     Indication: ANXIETY
     Dates: start: 20060101
  3. WELLBUTRIN [Interacting]
     Indication: DEPRESSION
  4. ACTONEL [Interacting]
     Indication: BONE DISORDER
  5. TIZANIDINE HCL [Interacting]
     Indication: BACK PAIN
     Dates: end: 20070101
  6. TRAMADOL HCL [Interacting]
     Indication: BACK PAIN
     Dates: end: 20070101
  7. EVISTA [Concomitant]
  8. FOSAMAX [Concomitant]
  9. CRESTOR [Concomitant]
  10. MEGESTROL ACETATE [Concomitant]
  11. CYTOMEL [Concomitant]
  12. DETROL LA [Concomitant]

REACTIONS (4)
  - CHILLS [None]
  - DRUG INTERACTION [None]
  - HEART RATE INCREASED [None]
  - PANIC ATTACK [None]
